FAERS Safety Report 7587478-X (Version None)
Quarter: 2011Q3

REPORT INFORMATION
  Report Type: 
  Country: None (occurrence: None)
  Receive Date: 20110704
  Receipt Date: 20110624
  Transmission Date: 20111222
  Serious: No
  Sender: FDA-Public Use
  Company Number: US-BIOGENIDEC-2011BI023640

PATIENT
  Age: 46 Year
  Sex: Female

DRUGS (1)
  1. AVONEX [Suspect]
     Indication: MULTIPLE SCLEROSIS
     Route: 030
     Dates: start: 20020101

REACTIONS (7)
  - HEADACHE [None]
  - CHILLS [None]
  - IMPAIRED DRIVING ABILITY [None]
  - HYPERHIDROSIS [None]
  - DYSPHAGIA [None]
  - DYSPNOEA [None]
  - GAIT DISTURBANCE [None]
